FAERS Safety Report 22521912 (Version 2)
Quarter: 2023Q2

REPORT INFORMATION
  Report Type: Report from Study
  Country: IL (occurrence: IL)
  Receive Date: 20230605
  Receipt Date: 20230626
  Transmission Date: 20230721
  Serious: Yes (Other)
  Sender: FDA-Public Use
  Company Number: IL-002147023-NVSC2023IL125388

PATIENT
  Age: 76 Year
  Sex: Male

DRUGS (1)
  1. ELTROMBOPAG OLAMINE [Interacting]
     Active Substance: ELTROMBOPAG OLAMINE
     Indication: Immune thrombocytopenia
     Dosage: 50 MG, QD
     Route: 048
     Dates: start: 20230201

REACTIONS (2)
  - Platelet count decreased [Recovering/Resolving]
  - Labelled drug-food interaction issue [Unknown]
